FAERS Safety Report 5267923-5 (Version None)
Quarter: 2007Q1

REPORT INFORMATION
  Report Type: 
  Country: None (occurrence: None)
  Receive Date: 20061213
  Receipt Date: 20030626
  Transmission Date: 20070707
  Serious: No
  Sender: FDA-Public Use
  Company Number: 2003UW08130

PATIENT
  Age: 78 Year
  Sex: Female
  Weight: 73.4827 kg

DRUGS (3)
  1. TAMOXIFEN CITRATE [Suspect]
  2. COZAAR [Concomitant]
  3. VITAMINS [Concomitant]

REACTIONS (2)
  - PHLEBITIS SUPERFICIAL [None]
  - VARICOSE VEIN [None]
